FAERS Safety Report 4747979-6 (Version None)
Quarter: 2005Q3

REPORT INFORMATION
  Report Type: 
  Country: None (occurrence: None)
  Receive Date: 20050817
  Receipt Date: 20050817
  Transmission Date: 20060218
  Serious: Yes (Hospitalization, Disabling)
  Sender: FDA-Public Use
  Company Number: None

PATIENT
  Sex: Female
  Weight: 77.1115 kg

DRUGS (4)
  1. PAXIL [Suspect]
     Indication: DEPRESSION
     Dosage: ONCE DAILY
     Dates: start: 19990101, end: 20020101
  2. PAXIL [Suspect]
     Indication: STRESS
     Dosage: ONCE DAILY
     Dates: start: 19990101, end: 20020101
  3. ALBUTEROL [Concomitant]
  4. IPRATROPIUM BROMIDE [Concomitant]

REACTIONS (12)
  - ABDOMINAL PAIN LOWER [None]
  - ABDOMINAL PAIN UPPER [None]
  - ABNORMAL FAECES [None]
  - FAECES DISCOLOURED [None]
  - GASTROINTESTINAL MOTILITY DISORDER [None]
  - HAEMATOCHEZIA [None]
  - HERNIA PAIN [None]
  - HIATUS HERNIA [None]
  - INTESTINAL FUNCTIONAL DISORDER [None]
  - INTESTINAL OBSTRUCTION [None]
  - PAIN [None]
  - SWELLING [None]
